FAERS Safety Report 18518527 (Version 1)
Quarter: 2020Q4

REPORT INFORMATION
  Report Type: Spontaneous
  Country: US (occurrence: US)
  Receive Date: 20201118
  Receipt Date: 20201118
  Transmission Date: 20210114
  Serious: No
  Sender: FDA-Public Use
  Company Number: US-ANIPHARMA-2019-US-022133

PATIENT
  Age: 72 Year
  Sex: Male
  Weight: 94.35 kg

DRUGS (11)
  1. FINASTERIDE. [Concomitant]
     Active Substance: FINASTERIDE
  2. HYDRALAZINE [Concomitant]
     Active Substance: HYDRALAZINE HYDROCHLORIDE
  3. LOSARTAN. [Concomitant]
     Active Substance: LOSARTAN
  4. ATORVASTATIN [Concomitant]
     Active Substance: ATORVASTATIN
  5. AMLODIPINE [Concomitant]
     Active Substance: AMLODIPINE BESYLATE
  6. GLIPIZIDE. [Concomitant]
     Active Substance: GLIPIZIDE
  7. FLOMAX [Concomitant]
     Active Substance: TAMSULOSIN HYDROCHLORIDE
  8. FENOIBRATE [Concomitant]
  9. FLECAINIDE ACETATE TABLETS 150 MG [Suspect]
     Active Substance: FLECAINIDE ACETATE
     Indication: ATRIAL FIBRILLATION
     Dosage: 2 TABLETS DAILY
     Route: 048
     Dates: start: 2014
  10. ATENOLOL. [Suspect]
     Active Substance: ATENOLOL
     Dosage: 1 DAILY
     Dates: start: 201910
  11. METFORMIN [Concomitant]
     Active Substance: METFORMIN HYDROCHLORIDE

REACTIONS (2)
  - Pain in extremity [Unknown]
  - Muscle twitching [Unknown]

NARRATIVE: CASE EVENT DATE: 201910
